FAERS Safety Report 9465484 (Version 1)
Quarter: 2013Q3

REPORT INFORMATION
  Report Type: Spontaneous
  Country: NL (occurrence: NL)
  Receive Date: 20130820
  Receipt Date: 20130820
  Transmission Date: 20140515
  Serious: Yes (Death)
  Sender: FDA-Public Use
  Company Number: PHHY2013NL089394

PATIENT
  Age: 28 Year
  Sex: Male

DRUGS (2)
  1. CLOZAPINE [Suspect]
     Indication: SCHIZOPHRENIA
     Dosage: 3 TIMES PER 1 DAYS (300 MG)
     Dates: start: 20130307
  2. CANNABIS [Concomitant]
     Dosage: UNK

REACTIONS (1)
  - Death [Fatal]
